FAERS Safety Report 9008320 (Version 2)
Quarter: 2013Q1

REPORT INFORMATION
  Report Type: Spontaneous
  Country: GB (occurrence: GB)
  Receive Date: 20130111
  Receipt Date: 20130118
  Transmission Date: 20140127
  Serious: Yes (Death)
  Sender: FDA-Public Use
  Company Number: PHFR2013GB000546

PATIENT
  Age: 80 Year
  Sex: Male

DRUGS (2)
  1. CLOZARIL (CLOZAPINE) [Suspect]
     Indication: SCHIZOPHRENIA
     Dosage: 2.5 MG, DAILY
     Route: 048
     Dates: start: 20070806
  2. SINEMET [Concomitant]
     Dosage: 2.5 G, DAILY

REACTIONS (2)
  - Fall [Fatal]
  - Thermal burn [Fatal]
